FAERS Safety Report 14345389 (Version 1)
Quarter: 2018Q1

REPORT INFORMATION
  Report Type: Spontaneous
  Country: US (occurrence: US)
  Receive Date: 20180103
  Receipt Date: 20180103
  Transmission Date: 20180509
  Serious: No
  Sender: FDA-Public Use
  Company Number: US-009507513-1712USA003099

PATIENT
  Age: 17 Year
  Sex: Female

DRUGS (1)
  1. NEXPLANON [Suspect]
     Active Substance: ETONOGESTREL
     Indication: CONTRACEPTION
     Dosage: 1 ROD/ EVERY THREE YEARS
     Route: 059
     Dates: start: 201710

REACTIONS (3)
  - Pain in extremity [Unknown]
  - Abdominal pain lower [Unknown]
  - Pain [Unknown]

NARRATIVE: CASE EVENT DATE: 2017
